FAERS Safety Report 9005585 (Version 1)
Quarter: 2013Q1

REPORT INFORMATION
  Report Type: Spontaneous
  Country: US (occurrence: US)
  Receive Date: 20130109
  Receipt Date: 20130109
  Transmission Date: 20140127
  Serious: Yes (Other)
  Sender: FDA-Public Use
  Company Number: US-PFIZER INC-2012326474

PATIENT
  Age: 56 Year
  Sex: Female
  Weight: 77.1 kg

DRUGS (3)
  1. LYRICA [Suspect]
     Indication: NEUROPATHY PERIPHERAL
     Dosage: 100 MG, UNK
     Dates: start: 201005
  2. LASIX [Concomitant]
     Indication: OEDEMA
     Dosage: 400 MG, UNK
  3. ULTRAM [Concomitant]
     Dosage: UNK

REACTIONS (3)
  - Large intestine perforation [Unknown]
  - Drug ineffective [Unknown]
  - Intentional drug misuse [Unknown]
